FAERS Safety Report 23318436 (Version 1)
Quarter: 2023Q4

REPORT INFORMATION
  Report Type: Spontaneous
  Country: EG (occurrence: EG)
  Receive Date: 20231220
  Receipt Date: 20231220
  Transmission Date: 20240110
  Serious: Yes (Hospitalization, Other)
  Sender: FDA-Public Use
  Company Number: EG-NOVOPROD-1151467

PATIENT
  Age: 599 Month
  Sex: Male
  Weight: 93 kg

DRUGS (12)
  1. NOVORAPID [Suspect]
     Active Substance: INSULIN ASPART
     Indication: Diabetes mellitus
     Dosage: 20 IU, TID
     Route: 058
     Dates: start: 2018
  2. NOVORAPID [Suspect]
     Active Substance: INSULIN ASPART
     Dosage: 16U-18U BEFORE BREAKFAST AND LUNCH
     Route: 058
     Dates: start: 20220128
  3. NOVORAPID [Suspect]
     Active Substance: INSULIN ASPART
     Dosage: UNK
     Route: 058
     Dates: start: 2022
  4. NOVORAPID [Suspect]
     Active Substance: INSULIN ASPART
     Dosage: 25 IU, TID
     Route: 058
     Dates: start: 202202, end: 202206
  5. TRESIBA [Suspect]
     Active Substance: INSULIN DEGLUDEC
     Indication: Diabetes mellitus
     Dosage: 25 IU
     Route: 058
     Dates: start: 20220128, end: 202302
  6. TRESIBA [Suspect]
     Active Substance: INSULIN DEGLUDEC
     Dosage: UNK (REINTRODUCED AGAIN )
     Route: 058
  7. ASPIRIN [Concomitant]
     Active Substance: ASPIRIN
     Indication: Thrombosis prophylaxis
     Dosage: 2 TAB/ONCE A DAY
     Route: 048
  8. DAPAGLIFLOZIN [Concomitant]
     Active Substance: DAPAGLIFLOZIN
     Indication: Diabetes mellitus
     Dosage: 1TAB/DAY BEFORE LUNCH
     Route: 048
     Dates: start: 20220128
  9. CANDALKAN [Concomitant]
     Indication: Hypertension
     Dosage: 1TAB/DAY
     Route: 048
  10. SUGARLO PLUS [Concomitant]
     Indication: Diabetes mellitus
     Dosage: 1TAB/DAY BEFORE DINNER
     Route: 048
     Dates: start: 20220128
  11. NEUROVIT [CYANOCOBALAMIN;IBUPROFEN;PYRIDOXINE HYDROCHLORIDE;THIAMINE H [Concomitant]
     Indication: Vitamin supplementation
     Dosage: 1 TAB/DAY
     Route: 048
  12. TRENTAL [Concomitant]
     Active Substance: PENTOXIFYLLINE
     Indication: Promotion of peripheral circulation
     Dosage: 1TAB/DAY
     Route: 048

REACTIONS (3)
  - Foot amputation [Recovered/Resolved]
  - Hypoglycaemia [Recovered/Resolved]
  - Hyperglycaemia [Recovered/Resolved]

NARRATIVE: CASE EVENT DATE: 20220201
